FAERS Safety Report 6649749 (Version 5)
Quarter: 2018Q4

REPORT INFORMATION
  Report Type: Report from Study
  Country: CH (occurrence: CH)
  Receive Date: 20080527
  Receipt Date: 20181214
  Transmission Date: 20190205
  Serious: Yes (Life-Threatening, Hospitalization, Other)
  Sender: FDA-Public Use
  Company Number: CH-ELI_LILLY_AND_COMPANY-CH200805002762

PATIENT
  Age: 50 Year
  Sex: Male

DRUGS (14)
  1. SEROQUEL [Concomitant]
     Active Substance: QUETIAPINE FUMARATE
     Dosage: 7000 MG,AT ONCE
     Dates: start: 20071001, end: 20071001
  2. DULOXETINE HYDROCHLORIDE. [Suspect]
     Active Substance: DULOXETINE HYDROCHLORIDE
     Dosage: 90 MG, UNKNOWN
     Route: 048
     Dates: end: 20070820
  3. CITALOPRAM [Concomitant]
     Active Substance: CITALOPRAM HYDROBROMIDE
     Dosage: 20 - 40 MG, DAILY (1/D)
     Route: 048
     Dates: start: 200608, end: 20070809
  4. TRIMIN SULFA [Concomitant]
     Dosage: 100 MG, DAILY (1/D)
     Route: 065
     Dates: start: 20070927
  5. SEROQUEL [Concomitant]
     Active Substance: QUETIAPINE FUMARATE
     Dosage: 325 MG, DAILY (1/D)
     Route: 048
     Dates: start: 20070829, end: 20070930
  6. TRIMIN SULFA [Concomitant]
     Dosage: 50 MG, DAILY (1/D)
     Route: 048
     Dates: start: 2007, end: 20070926
  7. TRIMIN SULFA [Concomitant]
     Dosage: UNK, UNKNOWN
     Route: 065
     Dates: start: 20071001, end: 20071001
  8. CITALOPRAM [Concomitant]
     Active Substance: CITALOPRAM HYDROBROMIDE
     Dosage: 20 MG, DAILY (1/D)
     Route: 065
     Dates: start: 20070810
  9. TEMESTA [LORAZEPAM] [Concomitant]
     Active Substance: LORAZEPAM
     Dosage: 16 MG, AT ONCE
     Route: 065
     Dates: start: 20071001
  10. DULOXETINE HYDROCHLORIDE. [Suspect]
     Active Substance: DULOXETINE HYDROCHLORIDE
     Indication: DEPRESSION
     Dosage: 30 MG, DAILY
     Route: 048
     Dates: start: 20070808
  11. SEROQUEL [Concomitant]
     Active Substance: QUETIAPINE FUMARATE
     Dosage: UNK UNK, DAILY (1/D)
     Route: 048
     Dates: start: 20070705
  12. DULOXETINE HYDROCHLORIDE. [Suspect]
     Active Substance: DULOXETINE HYDROCHLORIDE
     Dosage: 120 MG, DAILY
     Route: 048
     Dates: start: 20070821, end: 20071001
  13. SEROQUEL [Concomitant]
     Active Substance: QUETIAPINE FUMARATE
     Dosage: 50 MG, DAILY (1/D)
     Route: 065
     Dates: start: 20071022
  14. SEROQUEL [Concomitant]
     Active Substance: QUETIAPINE FUMARATE
     Dosage: UNK MG, DAILY (1/D)
     Route: 065
     Dates: start: 20071002, end: 20071022

REACTIONS (6)
  - Feeling abnormal [Recovered/Resolved]
  - Nervousness [Unknown]
  - Agitation [Recovered/Resolved]
  - Suicide attempt [Recovered/Resolved]
  - Depression [Unknown]
  - Aspiration [Unknown]

NARRATIVE: CASE EVENT DATE: 20071001
